FAERS Safety Report 22009920 (Version 1)
Quarter: 2023Q1

REPORT INFORMATION
  Report Type: Spontaneous
  Country: FR (occurrence: FR)
  Receive Date: 20230220
  Receipt Date: 20230220
  Transmission Date: 20230417
  Serious: Yes (Hospitalization, Other)
  Sender: FDA-Public Use
  Company Number: None

PATIENT
  Age: 88 Year
  Sex: Female
  Weight: 75 kg

DRUGS (6)
  1. PLAVIX [Suspect]
     Active Substance: CLOPIDOGREL BISULFATE
     Indication: Carotid artery thrombosis
     Route: 048
     Dates: start: 202206, end: 20221218
  2. COMIRNATY [Suspect]
     Active Substance: TOZINAMERAN
     Indication: COVID-19 immunisation
     Dosage: 1DF, TOTAL
     Route: 030
     Dates: start: 20221215, end: 20221215
  3. VENTOLIN [Concomitant]
     Active Substance: ALBUTEROL SULFATE
  4. TOVIAZ [Concomitant]
     Active Substance: FESOTERODINE FUMARATE
  5. IRBESARTAN [Concomitant]
     Active Substance: IRBESARTAN
  6. OMEPRAZOLE [Concomitant]
     Active Substance: OMEPRAZOLE

REACTIONS (1)
  - Spinal cord haematoma [Recovering/Resolving]

NARRATIVE: CASE EVENT DATE: 20221219
